FAERS Safety Report 9880636 (Version 1)
Quarter: 2014Q1

REPORT INFORMATION
  Report Type: Spontaneous
  Country: US (occurrence: US)
  Receive Date: 20140207
  Receipt Date: 20140207
  Transmission Date: 20141002
  Serious: Yes (Hospitalization)
  Sender: FDA-Public Use
  Company Number: US-BAYER-2014-019706

PATIENT
  Age: 52 Year
  Sex: Female

DRUGS (3)
  1. YASMIN [Suspect]
  2. MULTIVITAMINS [Concomitant]
     Dosage: DAILY
  3. CALCIUM [Concomitant]

REACTIONS (1)
  - Pelvic venous thrombosis [None]
